FAERS Safety Report 18248349 (Version 1)
Quarter: 2020Q3

REPORT INFORMATION
  Report Type: Spontaneous
  Country: US (occurrence: US)
  Receive Date: 20200909
  Receipt Date: 20200909
  Transmission Date: 20201103
  Serious: Yes (Life-Threatening, Hospitalization, Other)
  Sender: FDA-Public Use
  Company Number: US-JNJFOC-20200901271

PATIENT
  Age: 68 Year
  Sex: Female

DRUGS (1)
  1. RIVAROXABAN [Suspect]
     Active Substance: RIVAROXABAN
     Indication: PRODUCT USED FOR UNKNOWN INDICATION
     Dosage: UNK
     Route: 048

REACTIONS (13)
  - Subdural haematoma [Unknown]
  - Ventricular fibrillation [Unknown]
  - Pulseless electrical activity [Unknown]
  - Respiratory failure [Unknown]
  - Metabolic encephalopathy [Unknown]
  - Pericardial haemorrhage [Unknown]
  - Ventricle rupture [Unknown]
  - Coma scale abnormal [Unknown]
  - Pulmonary contusion [Unknown]
  - Fall [Unknown]
  - Renal failure [Unknown]
  - Bradycardia [Unknown]
  - Rib fracture [Unknown]
